FAERS Safety Report 24091938 (Version 1)
Quarter: 2024Q3

REPORT INFORMATION
  Report Type: Spontaneous
  Country: US (occurrence: US)
  Receive Date: 20240715
  Receipt Date: 20240715
  Transmission Date: 20241016
  Serious: No
  Sender: PERRIGO
  Company Number: US-PERRIGO-24US001384

PATIENT
  Age: 68 Year
  Sex: Female
  Weight: 61.224 kg

DRUGS (9)
  1. MINOXIDIL [Suspect]
     Active Substance: MINOXIDIL
     Indication: Alopecia
     Dosage: 1 ML, BID
     Route: 061
     Dates: start: 20240120, end: 20240122
  2. MINOXIDIL [Suspect]
     Active Substance: MINOXIDIL
     Dosage: 1 ML, QD
     Route: 061
     Dates: start: 20240123, end: 20240129
  3. LEVOTHYROXINE [Concomitant]
     Active Substance: LEVOTHYROXINE\LEVOTHYROXINE SODIUM
     Indication: Hypothyroidism
     Dosage: UNKNOWN, DAILY
     Route: 065
     Dates: start: 2005
  4. FISH OIL [Concomitant]
     Active Substance: FISH OIL
     Indication: Supplementation therapy
     Dosage: UNKNOWN, DAILY
     Route: 065
     Dates: start: 2014
  5. VITAMIN C [Concomitant]
     Active Substance: ASCORBIC ACID
     Indication: Autoimmune thyroiditis
     Dosage: UNKNOWN, DAILY
     Route: 065
     Dates: start: 2022
  6. VITAMIN D NOS [Concomitant]
     Active Substance: CHOLECALCIFEROL\ERGOCALCIFEROL
     Indication: Supplementation therapy
     Dosage: UNKNOWN, DAILY
     Route: 065
     Dates: start: 2021
  7. BIOTIN [Concomitant]
     Active Substance: BIOTIN
     Indication: Alopecia
     Dosage: UNKNOWN, DAILY
     Route: 065
     Dates: start: 20231207
  8. CALCIUM [Concomitant]
     Active Substance: CALCIUM
     Indication: Routine health maintenance
     Dosage: UNKNOWN, DAILY
     Route: 065
     Dates: start: 2004
  9. ZINC [Concomitant]
     Active Substance: ZINC
     Indication: Alopecia
     Dosage: UNKNOWN, DAILY
     Route: 065
     Dates: start: 20240122

REACTIONS (2)
  - Drug ineffective [Unknown]
  - Off label use [Unknown]

NARRATIVE: CASE EVENT DATE: 20240120
